FAERS Safety Report 21905301 (Version 1)
Quarter: 2023Q1

REPORT INFORMATION
  Report Type: Spontaneous
  Country: US (occurrence: None)
  Receive Date: 20230123
  Receipt Date: 20230123
  Transmission Date: 20230417
  Serious: Yes (Other)
  Sender: FDA-Public Use
  Company Number: None

PATIENT
  Age: 51 Year
  Sex: Female
  Weight: 61.69 kg

DRUGS (1)
  1. LEVOTHYROXINE [Suspect]
     Active Substance: LEVOTHYROXINE
     Dates: start: 20230104, end: 20230123

REACTIONS (9)
  - Myalgia [None]
  - Pain [None]
  - Muscle spasms [None]
  - Gastrooesophageal reflux disease [None]
  - Condition aggravated [None]
  - Headache [None]
  - Abdominal pain upper [None]
  - Gastritis [None]
  - Fatigue [None]

NARRATIVE: CASE EVENT DATE: 20230119
